FAERS Safety Report 19573670 (Version 1)
Quarter: 2021Q3

REPORT INFORMATION
  Report Type: Spontaneous
  Country: JP (occurrence: JP)
  Receive Date: 20210717
  Receipt Date: 20210717
  Transmission Date: 20211014
  Serious: Yes (Death, Other)
  Sender: FDA-Public Use
  Company Number: JP-UNITED THERAPEUTICS-UNT-2015-009743

PATIENT
  Age: 23 Year
  Sex: Female
  Weight: 54 kg

DRUGS (16)
  1. FLUITRAN [Concomitant]
     Indication: RIGHT VENTRICULAR FAILURE
     Dosage: 3 MG/DAILY
     Route: 048
  2. TRACLEER [Concomitant]
     Active Substance: BOSENTAN
     Indication: PULMONARY ARTERIAL HYPERTENSION
     Dosage: 4 DF/DAY
     Route: 048
     Dates: start: 200407, end: 20160804
  3. LASIX [Concomitant]
     Active Substance: FUROSEMIDE
     Indication: RIGHT VENTRICULAR FAILURE
     Dosage: 80 MG/DAILY
     Route: 048
  4. LUPRAC [Concomitant]
     Active Substance: TORSEMIDE
     Indication: RIGHT VENTRICULAR FAILURE
     Dosage: UNK
     Route: 048
     Dates: start: 20150206
  5. ADCIRCA [Concomitant]
     Active Substance: TADALAFIL
     Indication: PULMONARY ARTERIAL HYPERTENSION
  6. ALDACTONE A [Concomitant]
     Active Substance: SPIRONOLACTONE
     Indication: RIGHT VENTRICULAR FAILURE
     Dosage: 100 MG/DAILY
     Route: 048
  7. REMODULIN [Suspect]
     Active Substance: TREPROSTINIL
     Indication: PULMONARY ARTERIAL HYPERTENSION
     Dosage: 0.115 ?G/KG, CONTINUING
     Route: 041
     Dates: start: 201502
  8. REMODULIN [Suspect]
     Active Substance: TREPROSTINIL
     Dosage: 0.117 ?G/KG, CONTINUING
     Route: 041
     Dates: start: 20150604
  9. LANIRAPID [Concomitant]
     Active Substance: METILDIGOXIN
     Indication: RIGHT VENTRICULAR FAILURE
     Dosage: 0.15MG/DAILY
     Route: 048
  10. REMODULIN [Suspect]
     Active Substance: TREPROSTINIL
     Indication: PULMONARY ARTERIAL HYPERTENSION
     Dosage: 0.108 ?G/KG/MIN, CONTINUING
     Route: 041
     Dates: start: 20150203
  11. K?SUPPLY [Concomitant]
     Active Substance: POTASSIUM CHLORIDE
     Indication: HYPOKALAEMIA
     Dosage: UNK
     Route: 048
     Dates: start: 20150204
  12. OPSUMIT [Concomitant]
     Active Substance: MACITENTAN
     Indication: PULMONARY ARTERIAL HYPERTENSION
     Dosage: 10MG/DAILY
     Route: 048
     Dates: start: 20160809
  13. FERROSTEC [Concomitant]
     Active Substance: SODIUM FERROUS CITRATE
     Indication: IRON DEFICIENCY ANAEMIA
     Dosage: UNK
     Route: 048
     Dates: start: 20150204
  14. SAMSCA [Concomitant]
     Active Substance: TOLVAPTAN
     Indication: PRODUCT USED FOR UNKNOWN INDICATION
     Dosage: 15 MG/DAILY
     Route: 048
  15. REMODULIN [Suspect]
     Active Substance: TREPROSTINIL
     Dosage: 0.12448 ?G/KG, CONTINUING
     Route: 041
     Dates: start: 20150302
  16. ADCIRCA [Concomitant]
     Active Substance: TADALAFIL
     Indication: PULMONARY ARTERIAL HYPERTENSION
     Dosage: UNK
     Route: 048
     Dates: start: 201106

REACTIONS (3)
  - Pain in extremity [Recovering/Resolving]
  - Pulmonary hypertension [Fatal]
  - Weight increased [Unknown]

NARRATIVE: CASE EVENT DATE: 2015
